FAERS Safety Report 14529854 (Version 1)
Quarter: 2018Q1

REPORT INFORMATION
  Report Type: Spontaneous
  Country: US (occurrence: US)
  Receive Date: 20180214
  Receipt Date: 20180214
  Transmission Date: 20180509
  Serious: No
  Sender: FDA-Public Use
  Company Number: US-009507513-1801USA006029

PATIENT
  Age: 62 Year
  Sex: Male

DRUGS (3)
  1. KETAMINE [Suspect]
     Active Substance: KETAMINE
     Indication: STATUS ASTHMATICUS
     Dosage: UNK
     Route: 041
  2. PROVENTIL [Suspect]
     Active Substance: ALBUTEROL
     Indication: STATUS ASTHMATICUS
     Dosage: UNK
     Route: 055
  3. MAGNESIUM (UNSPECIFIED) [Suspect]
     Active Substance: MAGNESIUM
     Indication: STATUS ASTHMATICUS
     Dosage: UNK

REACTIONS (1)
  - Drug ineffective [Recovering/Resolving]
